FAERS Safety Report 11525574 (Version 1)
Quarter: 2015Q3

REPORT INFORMATION
  Report Type: Other
  Country: CA (occurrence: CA)
  Receive Date: 20150918
  Receipt Date: 20150918
  Transmission Date: 20151125
  Serious: Yes (Other)
  Sender: FDA-Public Use
  Company Number: CA-COL_20703_2015

PATIENT
  Sex: Female

DRUGS (2)
  1. ANTIEPILEPTIC [Concomitant]
     Active Substance: UNSPECIFIED INGREDIENT
     Indication: EPILEPSY
     Dosage: NI/
  2. TOTAL UNSPECIFIED TP (TRICLOSAN 0.3% W/W, SODIUM FLUORIDE 0.24 % W/W) [Suspect]
     Active Substance: SODIUM FLUORIDE\TRICLOSAN
     Indication: PRODUCT USED FOR UNKNOWN INDICATION
     Dosage: COVERED THE WHOLE HEAD OF THE TOOTHBRUSH/ BID/
     Route: 048
     Dates: start: 201507, end: 20150827

REACTIONS (1)
  - Seizure [Not Recovered/Not Resolved]

NARRATIVE: CASE EVENT DATE: 2015
